FAERS Safety Report 11513151 (Version 1)
Quarter: 2015Q3

REPORT INFORMATION
  Report Type: Spontaneous
  Country: US (occurrence: US)
  Receive Date: 20150903
  Receipt Date: 20150903
  Transmission Date: 20151125
  Serious: Yes (Other)
  Sender: FDA-Public Use
  Company Number: US-ELI_LILLY_AND_COMPANY-US201207007745

PATIENT
  Age: 55 Year
  Sex: Female
  Weight: 43.54 kg

DRUGS (1)
  1. CYMBALTA [Suspect]
     Active Substance: DULOXETINE HYDROCHLORIDE
     Indication: DEPRESSION
     Dosage: 60 MG, QD
     Route: 048
     Dates: start: 20120530, end: 20120705

REACTIONS (2)
  - Suicidal ideation [Recovered/Resolved]
  - Flat affect [Recovered/Resolved]

NARRATIVE: CASE EVENT DATE: 201206
